FAERS Safety Report 25703595 (Version 2)
Quarter: 2025Q4

REPORT INFORMATION
  Report Type: Spontaneous
  Country: US (occurrence: US)
  Receive Date: 20250820
  Receipt Date: 20251121
  Transmission Date: 20260118
  Serious: No
  Sender: VERASTEM
  Company Number: US-VERASTEM-2025-00221

PATIENT

DRUGS (1)
  1. AVMAPKI FAKZYNJA CO-PACK [Suspect]
     Active Substance: AVUTOMETINIB POTASSIUM\DEFACTINIB HYDROCHLORIDE
     Indication: Ovarian cancer
     Dosage: 0.8 MG OF AVUTOMETINIB/200 MG OF DEFACTINIB, AS DIRECTED
     Route: 048
     Dates: start: 20250616

REACTIONS (5)
  - Muscular weakness [Unknown]
  - Diarrhoea [Unknown]
  - Gastrooesophageal reflux disease [Unknown]
  - Rash erythematous [Recovering/Resolving]
  - Dry skin [Unknown]
